FAERS Safety Report 18497189 (Version 2)
Quarter: 2020Q4

REPORT INFORMATION
  Report Type: Report from Study
  Country: IL (occurrence: IL)
  Receive Date: 20201112
  Receipt Date: 20201116
  Transmission Date: 20210114
  Serious: Yes (Life-Threatening, Hospitalization, Other)
  Sender: FDA-Public Use
  Company Number: IL-TEVA-2020-IL-1848822

PATIENT
  Age: 2 Month
  Sex: Female

DRUGS (6)
  1. SOMATOSTATIN [Concomitant]
     Active Substance: SOMATOSTATIN
     Indication: ASCITES
     Route: 065
  2. ALBUMIN [Concomitant]
     Active Substance: ALBUMIN HUMAN
     Indication: HYPOALBUMINAEMIA
     Route: 065
  3. VINBLASTINE [Suspect]
     Active Substance: VINBLASTINE
     Indication: INFANTILE FIBROMATOSIS
     Dosage: LOW DOSE
     Route: 051
  4. ENOXAPARIN [Suspect]
     Active Substance: ENOXAPARIN
     Indication: ATRIAL THROMBOSIS
     Route: 065
  5. BIVALIRUDIN. [Suspect]
     Active Substance: BIVALIRUDIN
     Indication: ATRIAL THROMBOSIS
     Route: 065
  6. METHOTREXATE. [Suspect]
     Active Substance: METHOTREXATE
     Indication: INFANTILE FIBROMATOSIS
     Dosage: LOW DOSE; TREATMENT WAS CHANGED TO ORAL METHOTREXATE
     Route: 051

REACTIONS (3)
  - Febrile neutropenia [Unknown]
  - Enterobacter bacteraemia [Unknown]
  - Drug ineffective [Unknown]
